FAERS Safety Report 4685925-4 (Version None)
Quarter: 2005Q2

REPORT INFORMATION
  Report Type: 
  Country: None (occurrence: None)
  Receive Date: 20050606
  Receipt Date: 20050524
  Transmission Date: 20051028
  Serious: Yes (Other)
  Sender: FDA-Public Use
  Company Number: HQWYE991126MAY05

PATIENT

DRUGS (3)
  1. RAPAMUNE [Suspect]
     Indication: PROPHYLAXIS AGAINST TRANSPLANT REJECTION
     Dosage: 3 MG DAILY (AFRICAN AMERICANS); 2 MG DAILY (OTHERS) LEVEL ADJ TO 8-10 NG/ML BY WKS 3-4 POSTTRANSPLAN
     Dates: start: 20010701
  2. TACROLIMUS (TACROLIMUS) [Concomitant]
  3. PREDNISONE [Concomitant]

REACTIONS (1)
  - KIDNEY TRANSPLANT REJECTION [None]
